FAERS Safety Report 20736859 (Version 1)
Quarter: 2022Q2

REPORT INFORMATION
  Report Type: Spontaneous
  Country: US (occurrence: US)
  Receive Date: 20220421
  Receipt Date: 20220421
  Transmission Date: 20220721
  Serious: No
  Sender: FDA-Public Use
  Company Number: US-BRISTOL-MYERS SQUIBB COMPANY-2022-021627

PATIENT
  Age: 87 Year
  Sex: Female

DRUGS (1)
  1. REVLIMID [Suspect]
     Active Substance: LENALIDOMIDE
     Indication: Plasma cell myeloma
     Dosage: 10 MILLIGRAM, TAKE 1 CAPSULE BY MOUTH DAILY FOR 21-DAYS OUT OF A 28 DAYS CYCLE
     Route: 048
     Dates: start: 20220121

REACTIONS (1)
  - Infection [Not Recovered/Not Resolved]
